FAERS Safety Report 5661292-4 (Version None)
Quarter: 2008Q1

REPORT INFORMATION
  Report Type: 
  Country: None (occurrence: None)
  Receive Date: 20080312
  Receipt Date: 20080227
  Transmission Date: 20080703
  Serious: Yes (Hospitalization)
  Sender: FDA-Public Use
  Company Number: SE-BAYER-200814103GPV

PATIENT
  Age: 24 Year
  Sex: Female

DRUGS (3)
  1. YASMIN [Suspect]
     Indication: CONTRACEPTION
     Route: 048
     Dates: start: 20070531
  2. LAMICTAL [Interacting]
     Indication: EPILEPSY
     Route: 048
  3. TOPIMAX [Concomitant]
     Indication: EPILEPSY
     Route: 048

REACTIONS (1)
  - EPILEPSY [None]
